FAERS Safety Report 13222474 (Version 2)
Quarter: 2017Q2

REPORT INFORMATION
  Report Type: Spontaneous
  Country: US (occurrence: US)
  Receive Date: 20170212
  Receipt Date: 20170428
  Transmission Date: 20170830
  Serious: No
  Sender: FDA-Public Use
  Company Number: US-CELGENEUS-USA-2017021486

PATIENT
  Age: 49 Year
  Sex: Female

DRUGS (4)
  1. CLODERM [Concomitant]
     Active Substance: CLOCORTOLONE PIVALATE
     Indication: BLEPHARITIS
     Route: 061
     Dates: start: 201402
  2. VYTONE [Concomitant]
     Active Substance: HYDROCORTISONE ACETATE\IODOQUINOL
     Indication: INTERTRIGO
     Route: 061
     Dates: start: 20160930
  3. OTEZLA [Suspect]
     Active Substance: APREMILAST
     Dosage: 60 MILLIGRAM
     Route: 048
     Dates: start: 201607
  4. OTEZLA [Suspect]
     Active Substance: APREMILAST
     Indication: PSORIASIS
     Route: 048
     Dates: start: 20161005

REACTIONS (1)
  - Skin infection [Unknown]

NARRATIVE: CASE EVENT DATE: 20170202
